FAERS Safety Report 17967112 (Version 1)
Quarter: 2020Q2

REPORT INFORMATION
  Report Type: Spontaneous
  Country: US (occurrence: US)
  Receive Date: 20200630
  Receipt Date: 20200630
  Transmission Date: 20200714
  Serious: No
  Sender: FDA-Public Use
  Company Number: None

PATIENT
  Age: 66 Year
  Sex: Male

DRUGS (1)
  1. ZOLEDRONIC (ZOLEDRONIC ACID 5MG/BAG INJ,100ML) [Suspect]
     Active Substance: ZOLEDRONIC ACID
     Indication: OSTEOPOROSIS
     Dates: start: 20190911, end: 20190911

REACTIONS (2)
  - Syncope [None]
  - Renal failure [None]

NARRATIVE: CASE EVENT DATE: 20150911
